FAERS Safety Report 8979664 (Version 1)
Quarter: 2012Q4

REPORT INFORMATION
  Report Type: 
  Country: US (occurrence: US)
  Receive Date: 20121221
  Receipt Date: 20121221
  Transmission Date: 20130627
  Serious: Yes (Other)
  Sender: FDA-Public Use
  Company Number: US-PFIZER INC-2012320519

PATIENT
  Age: 58 Year
  Sex: Female

DRUGS (2)
  1. LEVOXYL [Suspect]
     Dosage: 75 ug, 1x/day
  2. ZOLOFT [Suspect]
     Dosage: 50 mg, 1x/day

REACTIONS (1)
  - Injury [Unknown]
